FAERS Safety Report 7329904-7 (Version None)
Quarter: 2011Q1

REPORT INFORMATION
  Report Type: 
  Country: None (occurrence: None)
  Receive Date: 20110303
  Receipt Date: 20110216
  Transmission Date: 20110831
  Serious: No
  Sender: FDA-Public Use
  Company Number: B0701254A

PATIENT
  Age: 29 Year
  Sex: Female

DRUGS (3)
  1. RELENZA [Suspect]
     Dosage: 20MG PER DAY
     Route: 055
     Dates: start: 20110216, end: 20110216
  2. RELENZA [Suspect]
     Indication: INFLUENZA
     Dosage: 40MG PER DAY
     Route: 055
     Dates: start: 20110214, end: 20110214
  3. RELENZA [Suspect]
     Dosage: 40MG PER DAY
     Route: 055
     Dates: start: 20110215, end: 20110215

REACTIONS (2)
  - MALAISE [None]
  - OVERDOSE [None]
